FAERS Safety Report 5018432-X (Version None)
Quarter: 2006Q2

REPORT INFORMATION
  Report Type: 
  Country: None (occurrence: None)
  Receive Date: 20060530
  Receipt Date: 20050603
  Transmission Date: 20061013
  Serious: Yes (Death, Other)
  Sender: FDA-Public Use
  Company Number: 2005084656

PATIENT
  Age: 77 Year
  Sex: Female
  Weight: 50 kg

DRUGS (9)
  1. LYRICA [Suspect]
     Indication: NEUROPATHY PERIPHERAL
     Dosage: 150 MG (75 MG, 2 IN 1 D), ORAL
     Route: 048
     Dates: start: 20050524, end: 20050526
  2. BACLOFEN [Concomitant]
  3. ENALAPRL [Concomitant]
  4. FUROSEMIDE [Concomitant]
  5. LANOXIN [Concomitant]
  6. MOVICOLON (MACROGOL, POTASSIUM CHLORIDE, SODIUM BICARBONATE, SODIUM CH [Concomitant]
  7. RANITIDINE HCL [Concomitant]
  8. SIMVASTATIN [Concomitant]
  9. ACENOCOUMAROL [Concomitant]

REACTIONS (7)
  - ACCIDENTAL DEATH [None]
  - DIFFICULTY IN WALKING [None]
  - DIPLOPIA [None]
  - DIZZINESS [None]
  - FACE INJURY [None]
  - FALL [None]
  - THROMBOSIS [None]
